FAERS Safety Report 4732885-3 (Version None)
Quarter: 2005Q3

REPORT INFORMATION
  Report Type: 
  Country: None (occurrence: None)
  Receive Date: 20050803
  Receipt Date: 20050426
  Transmission Date: 20060218
  Serious: No
  Sender: FDA-Public Use
  Company Number: US-GLAXOSMITHKLINE-A0555819A

PATIENT
  Age: 71 Year
  Sex: Female

DRUGS (5)
  1. AVANDAMET [Suspect]
     Route: 048
     Dates: start: 20040801, end: 20050201
  2. AVANDIA [Suspect]
     Dosage: 2MG TWICE PER DAY
     Route: 048
     Dates: start: 20050317
  3. METFORMIN [Suspect]
     Dosage: 500MG TWICE PER DAY
     Route: 048
     Dates: start: 20050317
  4. LIPITOR [Concomitant]
  5. GLYBURIDE [Concomitant]

REACTIONS (4)
  - BLOOD GLUCOSE INCREASED [None]
  - DYSPEPSIA [None]
  - INSOMNIA [None]
  - NAUSEA [None]
